FAERS Safety Report 4996537-7 (Version None)
Quarter: 2006Q2

REPORT INFORMATION
  Report Type: 
  Country: None (occurrence: None)
  Receive Date: 20060509
  Receipt Date: 20060327
  Transmission Date: 20061013
  Serious: Yes (Hospitalization)
  Sender: FDA-Public Use
  Company Number: IE-AMGEN-UK174078

PATIENT
  Sex: Female
  Weight: 90 kg

DRUGS (5)
  1. NEULASTA [Suspect]
     Indication: CHEMOTHERAPY
     Route: 058
     Dates: start: 20060324, end: 20060406
  2. DOXORUBICIN HCL [Concomitant]
     Route: 065
  3. BLEOMYCIN [Concomitant]
     Route: 065
  4. VINBLASTINE SULFATE [Concomitant]
     Route: 065
  5. DACARBAZINE [Concomitant]
     Route: 065

REACTIONS (8)
  - ANAPHYLACTIC REACTION [None]
  - DYSPNOEA [None]
  - FALL [None]
  - RASH [None]
  - RASH GENERALISED [None]
  - SWOLLEN TONGUE [None]
  - SYNCOPE [None]
  - THROAT TIGHTNESS [None]
